FAERS Safety Report 4747126-0 (Version None)
Quarter: 2005Q3

REPORT INFORMATION
  Report Type: 
  Country: None (occurrence: None)
  Receive Date: 20050815
  Receipt Date: 20050801
  Transmission Date: 20060218
  Serious: Yes (Death, Hospitalization, Other)
  Sender: FDA-Public Use
  Company Number: US_0504115895

PATIENT
  Sex: Male

DRUGS (5)
  1. ZYPREXA [Suspect]
     Indication: DEPRESSION
     Dosage: 5 MG AT BEDTIME
     Dates: start: 19990309, end: 20040401
  2. RITALIN [Concomitant]
  3. REMERON [Concomitant]
  4. PAROXETINE [Concomitant]
  5. DIVALPROXEX (VALPROATE SEMISODIUM) [Concomitant]

REACTIONS (3)
  - BLOOD GLUCOSE INCREASED [None]
  - PANCREATITIS [None]
  - URINE KETONE BODY PRESENT [None]
